FAERS Safety Report 4700976-9 (Version None)
Quarter: 2005Q2

REPORT INFORMATION
  Report Type: 
  Country: None (occurrence: None)
  Receive Date: 20050624
  Receipt Date: 20050613
  Transmission Date: 20051028
  Serious: Yes (Other)
  Sender: FDA-Public Use
  Company Number: B0384089A

PATIENT
  Age: 11 Year
  Sex: 0

DRUGS (3)
  1. EPIVIR [Suspect]
     Dosage: 4 MG/KG / TWICE PER DAY
  2. RETROVIR [Suspect]
     Dosage: 160 MG/M2 / THREE TIMES PER DAY
  3. INDINAVIR SULFATE CAPSULE (INDINAVIR SULFATE) [Suspect]
     Dosage: 500 MG/M2 / THREE TIMES PER DAY / ORAL
     Route: 048

REACTIONS (4)
  - DRUG TOXICITY [None]
  - HAEMATURIA [None]
  - NAUSEA [None]
  - VOMITING [None]
